FAERS Safety Report 24738938 (Version 2)
Quarter: 2025Q1

REPORT INFORMATION
  Report Type: Spontaneous
  Country: US (occurrence: US)
  Receive Date: 20241216
  Receipt Date: 20250106
  Transmission Date: 20250408
  Serious: Yes (Other)
  Sender: ASTELLAS
  Company Number: US-ASTELLAS-2024-AER-024850

PATIENT
  Sex: Female

DRUGS (1)
  1. CRESEMBA [Suspect]
     Active Substance: ISAVUCONAZONIUM SULFATE
     Indication: Bronchopulmonary aspergillosis allergic
     Dosage: 2 CAPSULES DAILY
     Route: 048
     Dates: start: 202410, end: 202412

REACTIONS (9)
  - Toxicity to various agents [Recovered/Resolved]
  - Condition aggravated [Recovered/Resolved]
  - Renal impairment [Not Recovered/Not Resolved]
  - Cystoid macular oedema [Recovering/Resolving]
  - Condition aggravated [Recovering/Resolving]
  - Dyspnoea [Not Recovered/Not Resolved]
  - Somnolence [Recovering/Resolving]
  - Fatigue [Recovering/Resolving]
  - Off label use [Unknown]

NARRATIVE: CASE EVENT DATE: 20240101
